FAERS Safety Report 13907260 (Version 1)
Quarter: 2017Q3

REPORT INFORMATION
  Report Type: Spontaneous
  Country: US (occurrence: US)
  Receive Date: 20170825
  Receipt Date: 20170825
  Transmission Date: 20171127
  Serious: No
  Sender: FDA-Public Use
  Company Number: US-ROCHE-1471697

PATIENT
  Sex: Male

DRUGS (3)
  1. NUTROPIN AQ [Suspect]
     Active Substance: SOMATROPIN
     Indication: GROWTH HORMONE DEFICIENCY
     Route: 058
     Dates: start: 20140319
  2. NASONEX [Concomitant]
     Active Substance: MOMETASONE FUROATE
     Dosage: AS REQUIRED
     Route: 045
  3. CLARITIN [Concomitant]
     Active Substance: LORATADINE
     Route: 048

REACTIONS (1)
  - Pain [Unknown]
